FAERS Safety Report 16048872 (Version 1)
Quarter: 2019Q1

REPORT INFORMATION
  Report Type: Report from Study
  Country: ZA (occurrence: ZA)
  Receive Date: 20190307
  Receipt Date: 20190307
  Transmission Date: 20190418
  Serious: Yes (Other)
  Sender: FDA-Public Use
  Company Number: ZA-SA-2019SA060694

PATIENT
  Age: 86 Year
  Sex: Male

DRUGS (5)
  1. NOVORAPID [Concomitant]
     Active Substance: INSULIN ASPART
     Dosage: 5 U, TID
     Dates: start: 19840301
  2. NUZAK [Concomitant]
     Active Substance: FLUOXETINE HYDROCHLORIDE
  3. INSULIN GLARGINE [Suspect]
     Active Substance: INSULIN GLARGINE
     Dosage: UNK
     Dates: start: 1990
  4. TOUJEO [Suspect]
     Active Substance: INSULIN GLARGINE
     Dosage: 15 U, HS
     Dates: start: 20190221
  5. PURESIS [Concomitant]
     Active Substance: FUROSEMIDE

REACTIONS (3)
  - Diabetes mellitus inadequate control [Not Recovered/Not Resolved]
  - Lower respiratory tract infection [Not Recovered/Not Resolved]
  - Lipohypertrophy [Not Recovered/Not Resolved]

NARRATIVE: CASE EVENT DATE: 20180101
